FAERS Safety Report 7079670-8 (Version None)
Quarter: 2010Q4

REPORT INFORMATION
  Report Type: 
  Country: None (occurrence: None)
  Receive Date: 20101102
  Receipt Date: 20101021
  Transmission Date: 20110411
  Serious: Yes (Other)
  Sender: FDA-Public Use
  Company Number: PHHY2010JP68774

PATIENT
  Age: 56 Year
  Sex: Male

DRUGS (1)
  1. NEORAL [Suspect]
     Indication: NEPHROTIC SYNDROME
     Route: 048

REACTIONS (9)
  - CHEST X-RAY ABNORMAL [None]
  - HAEMOPTYSIS [None]
  - INFLAMMATION [None]
  - LUNG ABSCESS [None]
  - LUNG LOBECTOMY [None]
  - LUNG SQUAMOUS CELL CARCINOMA STAGE UNSPECIFIED [None]
  - LYMPHADENECTOMY [None]
  - PULMONARY CAVITATION [None]
  - TUMOUR MARKER INCREASED [None]
